FAERS Safety Report 4318421-4 (Version None)
Quarter: 2004Q1

REPORT INFORMATION
  Report Type: 
  Country: None (occurrence: None)
  Receive Date: 20040315
  Receipt Date: 20040227
  Transmission Date: 20041129
  Serious: Yes (Other)
  Sender: FDA-Public Use
  Company Number: 430004L04JPN

PATIENT
  Age: 48 Year
  Sex: Male

DRUGS (2)
  1. NOVANTRONE [Suspect]
     Indication: ACUTE MYELOID LEUKAEMIA
  2. CYTARABINE [Suspect]
     Indication: ACUTE MYELOID LEUKAEMIA

REACTIONS (8)
  - ASPERGILLOSIS [None]
  - BACTERIAL INFECTION [None]
  - LEUKOPENIA [None]
  - MYELOBLAST COUNT DECREASED [None]
  - NEUTROPENIA [None]
  - PNEUMONIA [None]
  - STEM CELL TRANSPLANT [None]
  - TUBERCULOSIS [None]
